FAERS Safety Report 22244129 (Version 1)
Quarter: 2023Q2

REPORT INFORMATION
  Report Type: Report from Study
  Country: DE (occurrence: DE)
  Receive Date: 20230424
  Receipt Date: 20230424
  Transmission Date: 20230722
  Serious: Yes (Hospitalization)
  Sender: FDA-Public Use
  Company Number: DE-ABBVIE-4737583

PATIENT
  Sex: Female

DRUGS (1)
  1. RINVOQ [Suspect]
     Active Substance: UPADACITINIB
     Indication: Rheumatoid arthritis
     Route: 048
     Dates: start: 202006, end: 202009

REACTIONS (8)
  - Faecaloma [Unknown]
  - COVID-19 [Unknown]
  - Skin laceration [Unknown]
  - Acute kidney injury [Unknown]
  - Fall [Unknown]
  - Atrial fibrillation [Unknown]
  - Hyponatraemia [Unknown]
  - Subarachnoid haemorrhage [Unknown]

NARRATIVE: CASE EVENT DATE: 20220701
